FAERS Safety Report 7985914-8 (Version None)
Quarter: 2011Q4

REPORT INFORMATION
  Report Type: 
  Country: None (occurrence: None)
  Receive Date: 20111216
  Receipt Date: 20111209
  Transmission Date: 20120403
  Serious: Yes (Hospitalization)
  Sender: FDA-Public Use
  Company Number: FR-PFIZER INC-2011300988

PATIENT
  Age: 79 Year
  Sex: Male

DRUGS (12)
  1. PROGRAF [Concomitant]
     Dosage: 1 MG, 2X/DAY
     Route: 048
     Dates: start: 20110601
  2. AMLODIPINE BESYLATE [Concomitant]
     Dosage: 10 MG, UNK
     Route: 048
     Dates: start: 20110719
  3. MYCOPHENOLATE MOFETIL (CELLCEPT) [Concomitant]
     Dosage: 500 MG, 2X/DAY
     Route: 048
     Dates: start: 20111025
  4. ATORVASTATIN CALCIUM [Concomitant]
     Dosage: 40 MG, UNK
     Route: 048
     Dates: start: 20110601
  5. PANTOPRAZOLE [Suspect]
     Dosage: 40 MG, DAILY
     Route: 048
     Dates: start: 20110601, end: 20111005
  6. LASIX [Suspect]
     Dosage: 80 MG, UNK
     Route: 048
     Dates: start: 20110601, end: 20111005
  7. BISOPROLOL FUMARATE [Suspect]
     Dosage: 10 MG, 1X/DAY
     Route: 048
     Dates: start: 20110915, end: 20111005
  8. MYCOPHENOLATE MOFETIL (CELLCEPT) [Concomitant]
     Dosage: 500 MG, 2X/DAY
     Route: 048
     Dates: start: 20110601, end: 20110926
  9. ARANESP [Concomitant]
     Dosage: UNK
     Route: 058
     Dates: start: 20110101
  10. ASPIRIN [Concomitant]
     Dosage: 75 MG, UNK
     Route: 048
  11. BISOPROLOL FUMARATE [Suspect]
     Dosage: 5 MG, DAILY
     Route: 048
     Dates: start: 20110824, end: 20110915
  12. PREDNISONE TAB [Concomitant]
     Dosage: 5 MG, UNK
     Route: 048
     Dates: start: 20110601

REACTIONS (1)
  - AGRANULOCYTOSIS [None]
